FAERS Safety Report 4719310-3 (Version None)
Quarter: 2005Q3

REPORT INFORMATION
  Report Type: 
  Country: None (occurrence: None)
  Receive Date: 20050721
  Receipt Date: 20050114
  Transmission Date: 20060218
  Serious: No
  Sender: FDA-Public Use
  Company Number: US-GLAXOSMITHKLINE-A0540772A

PATIENT
  Age: 38 Year
  Sex: Male

DRUGS (6)
  1. MALARONE [Suspect]
     Indication: MALARIA
     Route: 048
     Dates: start: 20041226, end: 20050113
  2. PROPECIA [Concomitant]
  3. VALTREX [Concomitant]
  4. NEXIUM [Concomitant]
  5. MULTI-VITAMIN [Concomitant]
  6. ZINC SUPPLEMENT [Concomitant]

REACTIONS (1)
  - VISION BLURRED [None]
